FAERS Safety Report 19672350 (Version 1)
Quarter: 2021Q3

REPORT INFORMATION
  Report Type: Other
  Country: US (occurrence: US)
  Receive Date: 20210808
  Receipt Date: 20210808
  Transmission Date: 20211014
  Serious: Yes (Other)
  Sender: FDA-Public Use
  Company Number: US-ROCHE-2880166

PATIENT
  Sex: Male
  Weight: 79.59 kg

DRUGS (9)
  1. VITAMIN D3 [Concomitant]
     Active Substance: CHOLECALCIFEROL
     Route: 048
  2. AMPYRA [Concomitant]
     Active Substance: DALFAMPRIDINE
  3. ASPRIN [Concomitant]
     Active Substance: ASPIRIN
     Route: 048
  4. SEROQUEL [Concomitant]
     Active Substance: QUETIAPINE FUMARATE
     Indication: BIPOLAR I DISORDER
     Dates: start: 2013
  5. OCREVUS [Suspect]
     Active Substance: OCRELIZUMAB
     Indication: RELAPSING-REMITTING MULTIPLE SCLEROSIS
     Dosage: NO
     Route: 042
     Dates: start: 20200623, end: 20201223
  6. DIAZEPAM. [Suspect]
     Active Substance: DIAZEPAM
     Indication: MUSCLE SPASMS
     Dosage: YES
     Route: 048
     Dates: start: 2015
  7. ATORVASTATIN [Concomitant]
     Active Substance: ATORVASTATIN
     Route: 048
     Dates: start: 2011
  8. ZOLOFT [Concomitant]
     Active Substance: SERTRALINE HYDROCHLORIDE
     Indication: BIPOLAR I DISORDER
     Route: 048
     Dates: start: 2013
  9. LATANOPROST. [Concomitant]
     Active Substance: LATANOPROST
     Route: 047
     Dates: start: 2019

REACTIONS (2)
  - White blood cell count decreased [Recovered/Resolved]
  - Small cell lung cancer [Not Recovered/Not Resolved]

NARRATIVE: CASE EVENT DATE: 2018
